FAERS Safety Report 14794908 (Version 1)
Quarter: 2018Q2

REPORT INFORMATION
  Report Type: Report from Study
  Country: IT (occurrence: IT)
  Receive Date: 20180423
  Receipt Date: 20180423
  Transmission Date: 20180711
  Serious: No
  Sender: FDA-Public Use
  Company Number: IT-SHIRE-IT201814475

PATIENT

DRUGS (1)
  1. ADVATE [Suspect]
     Active Substance: ANTIHEMOPHILIC FACTOR, HUMAN RECOMBINANT
     Indication: PRODUCT USED FOR UNKNOWN INDICATION
     Dosage: UNK, 2X A WEEK
     Route: 065

REACTIONS (2)
  - Head injury [Unknown]
  - Haematoma [Unknown]

NARRATIVE: CASE EVENT DATE: 20180416
